FAERS Safety Report 22820038 (Version 4)
Quarter: 2024Q3

REPORT INFORMATION
  Report Type: Spontaneous
  Country: DE (occurrence: DE)
  Receive Date: 20230814
  Receipt Date: 20240712
  Transmission Date: 20241017
  Serious: Yes (Hospitalization, Other)
  Sender: ASTELLAS
  Company Number: DE-ASTELLAS-2023US024323

PATIENT
  Age: 66 Year
  Sex: Female

DRUGS (6)
  1. PADCEV [Suspect]
     Active Substance: ENFORTUMAB VEDOTIN-EJFV
     Indication: Transitional cell carcinoma
     Dosage: 1.25 MG/KG, 2 CYCLES OF 1.25 MG/KG OF BODYWEIGHT, CYCLIC, AS STARTING DOSE
     Route: 042
     Dates: start: 20220128, end: 20220408
  2. PADCEV [Suspect]
     Active Substance: ENFORTUMAB VEDOTIN-EJFV
     Dosage: 30 MG, CYCLIC (MINIMUM INTERVAL 7 DAYS)
     Route: 042
     Dates: start: 20230128, end: 20230128
  3. PADCEV [Suspect]
     Active Substance: ENFORTUMAB VEDOTIN-EJFV
     Dosage: 30 MG, CYCLIC (MINIMUM INTERVAL 7 DAYS)
     Route: 042
     Dates: start: 20230204, end: 20230204
  4. PADCEV [Suspect]
     Active Substance: ENFORTUMAB VEDOTIN-EJFV
     Route: 042
     Dates: start: 20230211, end: 20230211
  5. PADCEV [Suspect]
     Active Substance: ENFORTUMAB VEDOTIN-EJFV
     Route: 042
     Dates: start: 20230225, end: 20230225
  6. PADCEV [Suspect]
     Active Substance: ENFORTUMAB VEDOTIN-EJFV
     Dosage: UNK UNK, UNKNOWN FREQ.
     Route: 042
     Dates: end: 20230408

REACTIONS (3)
  - Haemoptysis [Unknown]
  - Malignant neoplasm progression [Unknown]
  - Coronavirus infection [Unknown]

NARRATIVE: CASE EVENT DATE: 20220401
